FAERS Safety Report 25540066 (Version 1)
Quarter: 2025Q3

REPORT INFORMATION
  Report Type: Spontaneous
  Country: EU (occurrence: EU)
  Receive Date: 20250710
  Receipt Date: 20250710
  Transmission Date: 20251020
  Serious: Yes (Other)
  Sender: TEVA
  Company Number: EU-TEVA-VS-3350468

PATIENT
  Age: 11 Year
  Sex: Male
  Weight: 30 kg

DRUGS (1)
  1. ATOMOXETINE [Suspect]
     Active Substance: ATOMOXETINE
     Indication: Product used for unknown indication
     Route: 048
     Dates: start: 20250708

REACTIONS (3)
  - Heart rate increased [Unknown]
  - Cold sweat [Unknown]
  - Pallor [Unknown]

NARRATIVE: CASE EVENT DATE: 20250708
